FAERS Safety Report 16820488 (Version 1)
Quarter: 2019Q3

REPORT INFORMATION
  Report Type: Spontaneous
  Country: TR (occurrence: TR)
  Receive Date: 20190918
  Receipt Date: 20190918
  Transmission Date: 20191005
  Serious: Yes (Hospitalization, Other)
  Sender: FDA-Public Use
  Company Number: TR-LUPIN PHARMACEUTICALS INC.-2018-09170

PATIENT
  Age: 30 Year
  Sex: Male
  Weight: 82 kg

DRUGS (1)
  1. CEFUROXIME. [Suspect]
     Active Substance: CEFUROXIME
     Indication: UPPER RESPIRATORY TRACT INFECTION
     Dosage: UNK
     Route: 048

REACTIONS (1)
  - Toxic epidermal necrolysis [Recovering/Resolving]
